FAERS Safety Report 11273046 (Version 1)
Quarter: 2015Q3

REPORT INFORMATION
  Report Type: Spontaneous
  Country: HR (occurrence: HR)
  Receive Date: 20150715
  Receipt Date: 20150715
  Transmission Date: 20151125
  Serious: Yes (Death, Hospitalization, Other)
  Sender: FDA-Public Use
  Company Number: HR-TEVA-577629ISR

PATIENT
  Age: 53 Year
  Sex: Male

DRUGS (2)
  1. QUETIAPINE [Suspect]
     Active Substance: QUETIAPINE
     Indication: SUICIDE ATTEMPT
     Route: 065
  2. NITRAZEPAM [Suspect]
     Active Substance: NITRAZEPAM
     Indication: SUICIDE ATTEMPT
     Route: 065

REACTIONS (7)
  - Intentional overdose [Fatal]
  - Renal failure [Unknown]
  - Coma [Fatal]
  - Toxicity to various agents [Fatal]
  - Pyrexia [Unknown]
  - Hypotonia [Unknown]
  - Suicide attempt [Fatal]
